FAERS Safety Report 17853571 (Version 2)
Quarter: 2020Q2

REPORT INFORMATION
  Report Type: Spontaneous
  Country: ZA (occurrence: ZA)
  Receive Date: 20200603
  Receipt Date: 20200617
  Transmission Date: 20200714
  Serious: No
  Sender: FDA-Public Use
  Company Number: ZA-SA-2020SA138163

PATIENT

DRUGS (1)
  1. NO PRODUCT [Suspect]
     Active Substance: UNSPECIFIED INGREDIENT

REACTIONS (1)
  - No adverse event [Unknown]
